FAERS Safety Report 9841003 (Version 2)
Quarter: 2014Q1

REPORT INFORMATION
  Report Type: Report from Study
  Country: IT (occurrence: IT)
  Receive Date: 20140124
  Receipt Date: 20140130
  Transmission Date: 20141002
  Serious: Yes (Hospitalization)
  Sender: FDA-Public Use
  Company Number: IT-ASTELLAS-2014US000570

PATIENT
  Age: 64 Year
  Sex: Male

DRUGS (4)
  1. PLACEBO [Suspect]
     Indication: LUNG NEOPLASM MALIGNANT
     Dosage: UNK MG, UID/QD
     Route: 048
     Dates: start: 20131030
  2. ERLOTINIB TABLET [Suspect]
     Indication: LUNG NEOPLASM MALIGNANT
     Dosage: 150 MG, UID/QD
     Route: 048
     Dates: start: 20140107
  3. NORVASC [Concomitant]
     Indication: HYPERTENSION
     Dosage: UNK
     Route: 065
     Dates: start: 1988
  4. RANITIDINA [Concomitant]
     Indication: PROPHYLAXIS
     Dosage: UNK
     Route: 065
     Dates: start: 20131030

REACTIONS (1)
  - Dyspnoea [Recovered/Resolved]
